FAERS Safety Report 6759592-X (Version None)
Quarter: 2010Q2

REPORT INFORMATION
  Report Type: 
  Country: None (occurrence: None)
  Receive Date: 20100608
  Receipt Date: 20100527
  Transmission Date: 20101027
  Serious: Yes (Death)
  Sender: FDA-Public Use
  Company Number: US-ASTRAZENECA-2010SE15847

PATIENT
  Sex: Female

DRUGS (5)
  1. SEROQUEL [Suspect]
     Dosage: 25 MG TAKE 2 TABLETS EVERY MORNING AND 4 TABLETS EVERY EVENING
     Route: 048
     Dates: start: 20070117
  2. PAXIL [Concomitant]
     Route: 048
     Dates: start: 20061226
  3. COZAAR [Concomitant]
     Dates: start: 20070303
  4. NEXIUM [Concomitant]
     Dates: start: 20070320
  5. AMBIEN CR [Concomitant]
     Dates: start: 20070321

REACTIONS (1)
  - DEATH [None]
